FAERS Safety Report 7866898-X (Version None)
Quarter: 2011Q4

REPORT INFORMATION
  Report Type: 
  Country: None (occurrence: None)
  Receive Date: 20111028
  Receipt Date: 20111027
  Transmission Date: 20120403
  Serious: Yes (Death, Hospitalization, Other)
  Sender: FDA-Public Use
  Company Number: US-ABBOTT-11P-163-0868675-00

PATIENT
  Sex: Female

DRUGS (2)
  1. HUMIRA [Suspect]
     Indication: RHEUMATOID ARTHRITIS
     Dates: start: 20040801, end: 20070501
  2. HUMIRA [Suspect]
     Dates: start: 20070501, end: 20090801

REACTIONS (17)
  - ACUTE MYELOID LEUKAEMIA [None]
  - FATIGUE [None]
  - STRESS [None]
  - PYREXIA [None]
  - MYELODYSPLASTIC SYNDROME [None]
  - PLATELET COUNT INCREASED [None]
  - BONE MARROW DISORDER [None]
  - PNEUMONIA [None]
  - ANAEMIA [None]
  - WHITE BLOOD CELL COUNT INCREASED [None]
  - RED BLOOD CELL SEDIMENTATION RATE INCREASED [None]
  - MENTAL IMPAIRMENT [None]
  - ACUTE LEUKAEMIA [None]
  - RIB FRACTURE [None]
  - FALL [None]
  - PAIN [None]
  - WEIGHT DECREASED [None]
